FAERS Safety Report 24864340 (Version 2)
Quarter: 2025Q1

REPORT INFORMATION
  Report Type: Spontaneous
  Country: FR (occurrence: FR)
  Receive Date: 20250120
  Receipt Date: 20250210
  Transmission Date: 20250409
  Serious: Yes (Death, Hospitalization)
  Sender: AMGEN
  Company Number: FR-AMGEN-FRASP2025007926

PATIENT

DRUGS (1)
  1. BEVACIZUMAB [Suspect]
     Active Substance: BEVACIZUMAB
     Indication: Lung cancer metastatic
     Route: 065

REACTIONS (3)
  - Death [Fatal]
  - COVID-19 [Fatal]
  - Multisystem inflammatory syndrome in adults [Unknown]
